FAERS Safety Report 20210489 (Version 1)
Quarter: 2021Q4

REPORT INFORMATION
  Report Type: Spontaneous
  Country: DE (occurrence: DE)
  Receive Date: 20211221
  Receipt Date: 20211221
  Transmission Date: 20220303
  Serious: Yes (Other)
  Sender: FDA-Public Use
  Company Number: None

PATIENT
  Age: 56 Year
  Sex: Female

DRUGS (1)
  1. XOLAIR [Suspect]
     Active Substance: OMALIZUMAB
     Indication: Urticaria physical
     Dosage: UNK (MONATLICH 2X 150 MG)
     Route: 065
     Dates: start: 2020

REACTIONS (4)
  - Anaphylactic shock [Unknown]
  - Dyspnoea [Unknown]
  - Hypersensitivity [Unknown]
  - Swelling [Unknown]
